FAERS Safety Report 7535713-6 (Version None)
Quarter: 2011Q2

REPORT INFORMATION
  Report Type: 
  Country: None (occurrence: None)
  Receive Date: 20110602
  Receipt Date: 20110526
  Transmission Date: 20111010
  Serious: Yes (Death)
  Sender: FDA-Public Use
  Company Number: 2011NUEUSA00016

PATIENT
  Age: 65 Year
  Sex: Male
  Weight: 59 kg

DRUGS (1)
  1. NUEDEXTA [Suspect]
     Indication: PRODUCT USED FOR UNKNOWN INDICATION
     Dates: start: 20110401

REACTIONS (1)
  - GASTROINTESTINAL HAEMORRHAGE [None]
